FAERS Safety Report 4362309-X (Version None)
Quarter: 2004Q2

REPORT INFORMATION
  Report Type: 
  Country: None (occurrence: None)
  Receive Date: 20040517
  Receipt Date: 20040507
  Transmission Date: 20050107
  Serious: Yes (Hospitalization, Other)
  Sender: FDA-Public Use
  Company Number: USA-2002-0003250

PATIENT
  Age: 66 Year
  Sex: Male
  Weight: 90.7 kg

DRUGS (35)
  1. OXYCONTIN [Suspect]
     Indication: PAIN
     Dosage: SEE IMAGE
     Dates: start: 20000128, end: 20000303
  2. OXYCONTIN [Suspect]
     Indication: PAIN
     Dosage: SEE IMAGE
     Dates: start: 20000303
  3. OXYCONTIN [Suspect]
     Indication: PAIN
     Dosage: SEE IMAGE
     Dates: start: 20001116
  4. OXYCODONE HCL [Suspect]
     Indication: PAIN
     Dosage: 5 MG ORAL
     Route: 048
     Dates: start: 20000323
  5. XANAX [Concomitant]
  6. TIAZAC [Concomitant]
  7. CARDURA [Concomitant]
  8. LORCET-HD [Concomitant]
  9. FLONASE [Concomitant]
  10. VIOXX [Concomitant]
  11. ADIPEX-P [Concomitant]
  12. ROXICODONE [Concomitant]
  13. NEURONTIN [Concomitant]
  14. SOMA [Concomitant]
  15. CLARITIN [Concomitant]
  16. KLONOPIN [Concomitant]
  17. DALMANE [Concomitant]
  18. SONATA [Concomitant]
  19. VALIUM [Concomitant]
  20. ARTHROTEC (MISOPROSTOL, DICLOFENAC SODIUM) [Concomitant]
  21. PAXIL [Concomitant]
  22. UNIPHIL (THEOPHYLLINE) [Concomitant]
  23. AXID [Concomitant]
  24. ZYRTEC [Concomitant]
  25. LAC-HYDRIN (AMMONIUM LACTATE) [Concomitant]
  26. CELEBREX [Concomitant]
  27. DOXEPIN (DOXEPIN) [Concomitant]
  28. PROMETHAZINE HYDROCHLORIDE WITH CODEINE (PROMETHAZINE HYDROCHLORIDE) [Concomitant]
  29. NORTRIPTYLINE HCL [Concomitant]
  30. CARDEC DM (CARBINOXAMINE MALEATE, DEXTROMETHORPHAN HYDROBROMIDE, PSEUD [Concomitant]
  31. PHENTOLAMINE (PHENTOLAMINE) [Concomitant]
  32. PHENTERMINE [Concomitant]
  33. IPRATROPIUM BROMIDE [Concomitant]
  34. XENICAL [Concomitant]
  35. ASPIRIN [Concomitant]

REACTIONS (28)
  - ABDOMINAL HERNIA [None]
  - ARTHROPATHY [None]
  - BRONCHITIS ACUTE [None]
  - CARDIAC DISORDER [None]
  - DEPRESSION [None]
  - DIZZINESS [None]
  - DRUG DEPENDENCE [None]
  - DRUG INEFFECTIVE [None]
  - DRUG WITHDRAWAL SYNDROME [None]
  - HEMIPARESIS [None]
  - HYPERHIDROSIS [None]
  - HYPOACUSIS [None]
  - INSOMNIA [None]
  - IRRITABILITY [None]
  - LEGAL PROBLEM [None]
  - LOWER LIMB DEFORMITY [None]
  - MAJOR DEPRESSION [None]
  - MUSCLE CRAMP [None]
  - NERVOUSNESS [None]
  - PAIN [None]
  - POLYSUBSTANCE DEPENDENCE [None]
  - SINUSITIS [None]
  - SPINAL COLUMN STENOSIS [None]
  - SPINAL DISORDER [None]
  - SPONDYLOSIS [None]
  - TREATMENT NONCOMPLIANCE [None]
  - VISION BLURRED [None]
  - VISUAL DISTURBANCE [None]
